FAERS Safety Report 24940625 (Version 12)
Quarter: 2025Q4

REPORT INFORMATION
  Report Type: Report from Study
  Country: US (occurrence: US)
  Receive Date: 20250207
  Receipt Date: 20251223
  Transmission Date: 20260117
  Serious: Yes (Death, Hospitalization, Other)
  Sender: INSMED
  Company Number: US-INSMED, INC.-2024-05105-US

PATIENT
  Sex: Male

DRUGS (11)
  1. ARIKAYCE [Suspect]
     Active Substance: AMIKACIN
     Indication: Mycobacterium avium complex infection
     Dosage: 590 MILLIGRAM, UNK
     Route: 055
     Dates: start: 202107
  2. ARIKAYCE [Suspect]
     Active Substance: AMIKACIN
     Dosage: 590 MILLIGRAM, QD
     Route: 055
     Dates: start: 20250129, end: 20250212
  3. ARIKAYCE [Suspect]
     Active Substance: AMIKACIN
     Dosage: UNK, UNK
     Route: 055
     Dates: start: 202505, end: 20250627
  4. ARIKAYCE [Suspect]
     Active Substance: AMIKACIN
     Dosage: 590 MILLIGRAM, QD
     Route: 055
     Dates: start: 2025, end: 2025
  5. TRELEGY ELLIPTA [Concomitant]
     Active Substance: FLUTICASONE FUROATE\UMECLIDINIUM BROMIDE\VILANTEROL TRIFENATATE
     Indication: Chronic obstructive pulmonary disease
     Dosage: UNK, UNK
     Route: 055
  6. ALBUTEROL SULFATE [Concomitant]
     Active Substance: ALBUTEROL SULFATE
     Indication: Dyspnoea
     Dosage: UNK, UNK
     Route: 055
  7. DULOXETINE [Concomitant]
     Active Substance: DULOXETINE
     Indication: Product used for unknown indication
     Dosage: UNK, UNK
     Route: 065
  8. FLUTICASONE [Concomitant]
     Active Substance: FLUTICASONE
     Indication: Product used for unknown indication
     Dosage: UNK, UNK
     Route: 045
  9. MIRTAZAPINE [Concomitant]
     Active Substance: MIRTAZAPINE
     Indication: Product used for unknown indication
     Dosage: UNK, UNK
     Route: 065
  10. PRIMIDONE [Concomitant]
     Active Substance: PRIMIDONE
     Indication: Product used for unknown indication
     Dosage: UNK, UNK
     Route: 065
  11. ETHAMBUTOL [Concomitant]
     Active Substance: ETHAMBUTOL HYDROCHLORIDE
     Indication: Product used for unknown indication
     Dosage: UNK, UNK
     Route: 065

REACTIONS (21)
  - Death [Fatal]
  - Oxygen therapy [Not Recovered/Not Resolved]
  - Thrombosis [Recovered/Resolved]
  - Hypercapnia [Not Recovered/Not Resolved]
  - Ventricular tachycardia [Unknown]
  - Pulmonary pain [Unknown]
  - Dry throat [Not Recovered/Not Resolved]
  - Hospice care [Unknown]
  - Heart rate decreased [Unknown]
  - Dyspnoea exertional [Unknown]
  - Adverse event [Unknown]
  - Illness [Unknown]
  - Oropharyngeal discomfort [Not Recovered/Not Resolved]
  - Dyspnoea [Not Recovered/Not Resolved]
  - Hypoacusis [Not Recovered/Not Resolved]
  - Fatigue [Not Recovered/Not Resolved]
  - Diarrhoea [Unknown]
  - Therapy interrupted [Unknown]
  - Drug dose omission by device [Unknown]
  - Product dose omission issue [Unknown]
  - Wrong technique in product usage process [Unknown]

NARRATIVE: CASE EVENT DATE: 20250101
